FAERS Safety Report 12638531 (Version 1)
Quarter: 2016Q3

REPORT INFORMATION
  Report Type: Not Available
  Country: AR (occurrence: AR)
  Receive Date: 20160809
  Receipt Date: 20160809
  Transmission Date: 20161109
  Serious: Yes (Hospitalization)
  Sender: FDA-Public Use
  Company Number: AR-ANIPHARMA-2016-AR-000002

PATIENT
  Age: 22 Year
  Sex: Male

DRUGS (4)
  1. PHENYTOIN SODIUM (NON-SPECIFIC) [Suspect]
     Active Substance: PHENYTOIN SODIUM
     Dosage: UNKNOWN
     Route: 065
  2. COLISTIN [Suspect]
     Active Substance: COLISTIN
     Dosage: UNKNOWN
     Route: 065
  3. MEROPENEM. [Suspect]
     Active Substance: MEROPENEM
     Dosage: UNKNOWN
     Route: 065
  4. VANCOMYCIN HYDROCHLORIDE (NON-SPECIFIC) [Suspect]
     Active Substance: VANCOMYCIN HYDROCHLORIDE
     Dosage: UNKNOWN
     Route: 065

REACTIONS (2)
  - Stevens-Johnson syndrome [Recovered/Resolved]
  - Obliterative bronchiolitis [Not Recovered/Not Resolved]
